FAERS Safety Report 16214322 (Version 1)
Quarter: 2019Q2

REPORT INFORMATION
  Report Type: Spontaneous
  Country: GB (occurrence: GB)
  Receive Date: 20190418
  Receipt Date: 20190418
  Transmission Date: 20190711
  Serious: Yes (Life-Threatening, Hospitalization, Disabling, Congenital Anomaly)
  Sender: FDA-Public Use
  Company Number: GB-PFIZER INC-2019161053

PATIENT
  Age: 25 Year
  Sex: Male
  Weight: 35 kg

DRUGS (1)
  1. IBUPROFEN. [Suspect]
     Active Substance: IBUPROFEN
     Dosage: UNK
     Route: 001
     Dates: start: 20150319, end: 20170319

REACTIONS (1)
  - Retching [Recovered/Resolved]

NARRATIVE: CASE EVENT DATE: 20190319
